FAERS Safety Report 10872690 (Version 1)
Quarter: 2015Q1

REPORT INFORMATION
  Report Type: Spontaneous
  Country: BR (occurrence: BR)
  Receive Date: 20150227
  Receipt Date: 20150227
  Transmission Date: 20150721
  Serious: Yes (Death, Disabling, Other)
  Sender: FDA-Public Use
  Company Number: BR-ASTRAZENECA-2015SE18264

PATIENT
  Sex: Male

DRUGS (6)
  1. SINITUINA [Concomitant]
  2. MEDICATIONS [Concomitant]
     Active Substance: UNSPECIFIED INGREDIENT
     Indication: DIABETES MELLITUS
  3. UNKNOWN MEDICATIONS [Concomitant]
     Active Substance: UNSPECIFIED INGREDIENT
     Indication: CEREBROVASCULAR ACCIDENT
     Dosage: FOR STROKE
  4. SELOZOK [Suspect]
     Active Substance: METOPROLOL SUCCINATE
     Route: 048
  5. SIMVASTATIN. [Concomitant]
     Active Substance: SIMVASTATIN
  6. UNKNOWN MEDICATIONS [Concomitant]
     Active Substance: UNSPECIFIED INGREDIENT
     Indication: CEREBROVASCULAR ACCIDENT
     Dosage: NOVARTIS MANUFACTURER

REACTIONS (3)
  - Cerebrovascular accident [Fatal]
  - Weight decreased [Unknown]
  - Bedridden [Unknown]

NARRATIVE: CASE EVENT DATE: 2013
